FAERS Safety Report 6013872-4 (Version None)
Quarter: 2008Q4

REPORT INFORMATION
  Report Type: 
  Country: None (occurrence: None)
  Receive Date: 20081219
  Receipt Date: 20081212
  Transmission Date: 20090506
  Serious: Yes (Hospitalization)
  Sender: FDA-Public Use
  Company Number: TR-ELI_LILLY_AND_COMPANY-TR200812003614

PATIENT
  Age: 58 Year
  Sex: Male

DRUGS (4)
  1. HUMULIN 70/30 [Suspect]
     Indication: DIABETES MELLITUS
     Dosage: 40 IU, DAILY (1/D)
     Route: 058
     Dates: start: 19830101
  2. ANTI-DIABETICS [Concomitant]
  3. CARDIAC THERAPY [Concomitant]
     Route: 048
  4. LIPITOR [Concomitant]
     Indication: HYPERCHOLESTEROLAEMIA
     Dosage: UNK, DAILY (1/D)

REACTIONS (3)
  - OEDEMA PERIPHERAL [None]
  - PARAESTHESIA [None]
  - TOE AMPUTATION [None]
